APPROVED DRUG PRODUCT: CLINDAMYCIN PALMITATE HYDROCHLORIDE
Active Ingredient: CLINDAMYCIN PALMITATE HYDROCHLORIDE
Strength: EQ 75MG BASE/5ML
Dosage Form/Route: FOR SOLUTION;ORAL
Application: A207047 | Product #001 | TE Code: AA
Applicant: SOMERSET THERAPEUTICS LLC
Approved: May 11, 2018 | RLD: No | RS: No | Type: RX